FAERS Safety Report 7130321-3 (Version None)
Quarter: 2010Q4

REPORT INFORMATION
  Report Type: 
  Country: None (occurrence: None)
  Receive Date: 20101101
  Receipt Date: 20100831
  Transmission Date: 20110411
  Serious: Yes (Other)
  Sender: FDA-Public Use
  Company Number: AMAG201000340

PATIENT
  Age: 72 Year
  Sex: Female

DRUGS (9)
  1. FERAHEME [Suspect]
     Indication: IRON DEFICIENCY ANAEMIA
     Dosage: 510 MG, SINGLE, INTRAVENOUS
     Route: 042
     Dates: start: 20100624, end: 20100624
  2. CALCIUM + VITAMIN D (CALCIUM, COLECALCIFEROL) TABLET [Concomitant]
  3. DIGOXIN [Concomitant]
  4. LASIX [Concomitant]
  5. MULTIVITAMIN (VITAMINS NOS) TABLET [Concomitant]
  6. POTASSIUM CHLORIDE [Concomitant]
  7. PRILOSEC (OMEPRAZOLE) [Concomitant]
  8. TAMOXIFEN CITRATE [Concomitant]
  9. ACETAMINOPHEN [Concomitant]

REACTIONS (7)
  - ABDOMINAL PAIN [None]
  - ANAPHYLACTIC REACTION [None]
  - BACK PAIN [None]
  - BLOOD PRESSURE INCREASED [None]
  - FLUSHING [None]
  - MUSCLE SPASMS [None]
  - OXYGEN SATURATION DECREASED [None]
